FAERS Safety Report 18333756 (Version 4)
Quarter: 2021Q1

REPORT INFORMATION
  Report Type: Report from Study
  Country: US (occurrence: US)
  Receive Date: 20201001
  Receipt Date: 20210324
  Transmission Date: 20210419
  Serious: No
  Sender: FDA-Public Use
  Company Number: NVSC2020US266431

PATIENT
  Age: 34 Year
  Sex: Female

DRUGS (2)
  1. MAYZENT [Suspect]
     Active Substance: SIPONIMOD
     Dosage: 1 MG
     Route: 048
  2. MAYZENT [Suspect]
     Active Substance: SIPONIMOD
     Indication: MULTIPLE SCLEROSIS
     Dosage: 2 MG, QD
     Route: 048
     Dates: start: 20200929, end: 20200929

REACTIONS (1)
  - Headache [Unknown]

NARRATIVE: CASE EVENT DATE: 20200929
